FAERS Safety Report 4922830-X (Version None)
Quarter: 2006Q1

REPORT INFORMATION
  Report Type: 
  Country: None (occurrence: None)
  Receive Date: 20060224
  Receipt Date: 20050912
  Transmission Date: 20060701
  Serious: Yes (Hospitalization)
  Sender: FDA-Public Use
  Company Number: US-MERCK-0509USA01654

PATIENT
  Age: 52 Year
  Sex: Male

DRUGS (2)
  1. VIOXX [Suspect]
     Indication: ARTHRITIS
     Route: 048
     Dates: start: 20030401
  2. VALIUM [Concomitant]
     Route: 048

REACTIONS (21)
  - ATELECTASIS [None]
  - BLADDER HYPERTROPHY [None]
  - BODY TEMPERATURE INCREASED [None]
  - CHEST PAIN [None]
  - COUGH [None]
  - CYST [None]
  - DIVERTICULUM [None]
  - DYSPNOEA [None]
  - FATIGUE [None]
  - HYDROCELE [None]
  - HYPOTENSION [None]
  - LUNG NEOPLASM [None]
  - MYOCARDIAL INFARCTION [None]
  - NASAL CONGESTION [None]
  - NECK PAIN [None]
  - OSTEOCHONDROSIS [None]
  - OSTEOPENIA [None]
  - PAIN [None]
  - PALPITATIONS [None]
  - RADICULOPATHY [None]
  - VARICOCELE [None]
